FAERS Safety Report 8792825 (Version 2)
Quarter: 2012Q4

REPORT INFORMATION
  Report Type: 
  Country: US (occurrence: US)
  Receive Date: 20120918
  Receipt Date: 20121010
  Transmission Date: 20130627
  Serious: Yes (Hospitalization)
  Sender: FDA-Public Use
  Company Number: US-B.I. PHARMACEUTICALS,INC./RIDGEFIELD-2012-BP-22426BP

PATIENT
  Age: 60 None
  Sex: Male

DRUGS (4)
  1. AGGRENOX [Suspect]
     Indication: CEREBROVASCULAR ACCIDENT PROPHYLAXIS
     Route: 048
     Dates: start: 20120516, end: 20120726
  2. AGGRENOX [Suspect]
     Indication: CEREBROVASCULAR ACCIDENT
  3. DIOVAN [Concomitant]
     Indication: HYPERTENSION
     Dosage: 160 mg
     Dates: start: 20120613
  4. ULTRAM [Concomitant]
     Indication: PAIN
     Dosage: 50 mg

REACTIONS (3)
  - Gastritis [Recovered/Resolved]
  - Headache [Recovered/Resolved]
  - Gastrooesophageal reflux disease [Not Recovered/Not Resolved]
